FAERS Safety Report 6103558-X (Version None)
Quarter: 2009Q1

REPORT INFORMATION
  Report Type: 
  Country: None (occurrence: None)
  Receive Date: 20090305
  Receipt Date: 20090223
  Transmission Date: 20090719
  Serious: Yes (Other)
  Sender: FDA-Public Use
  Company Number: SE-BAXTER-2009BH003168

PATIENT
  Age: 37 Year
  Sex: Female

DRUGS (6)
  1. GAMMAGARD LIQUID [Suspect]
     Indication: MULTIPLE SCLEROSIS
     Route: 042
     Dates: start: 20080401, end: 20090107
  2. GAMMAGARD LIQUID [Suspect]
     Indication: OFF LABEL USE
     Route: 042
     Dates: start: 20080401, end: 20090107
  3. LAMOTRIGINE [Concomitant]
  4. PRIMPERAN [Concomitant]
  5. TRAMADOL HCL [Concomitant]
     Indication: MULTIPLE SCLEROSIS
  6. INTERFERON [Concomitant]
     Indication: MULTIPLE SCLEROSIS

REACTIONS (4)
  - HEADACHE [None]
  - INFUSION RELATED REACTION [None]
  - MUSCLE SPASMS [None]
  - OFF LABEL USE [None]
